FAERS Safety Report 22243679 (Version 1)
Quarter: 2023Q2

REPORT INFORMATION
  Report Type: Report from Study
  Country: US (occurrence: US)
  Receive Date: 20230424
  Receipt Date: 20230424
  Transmission Date: 20230722
  Serious: Yes (Other)
  Sender: FDA-Public Use
  Company Number: US-ABBVIE-4735195

PATIENT
  Sex: Female

DRUGS (2)
  1. HUMIRA [Suspect]
     Active Substance: ADALIMUMAB
     Indication: Psoriatic arthropathy
     Route: 058
     Dates: start: 20221216
  2. HUMIRA [Suspect]
     Active Substance: ADALIMUMAB
     Indication: Rheumatoid arthritis

REACTIONS (11)
  - Eye disorder [Unknown]
  - Pain [Not Recovered/Not Resolved]
  - Eye haemorrhage [Unknown]
  - Eye haemorrhage [Unknown]
  - Herpes zoster [Recovered/Resolved]
  - Blood cholesterol increased [Unknown]
  - Peripheral swelling [Unknown]
  - Bone disorder [Unknown]
  - Decreased immune responsiveness [Unknown]
  - Exostosis [Unknown]
  - Fatigue [Unknown]

NARRATIVE: CASE EVENT DATE: 20230101
